FAERS Safety Report 8184363-X (Version None)
Quarter: 2012Q1

REPORT INFORMATION
  Report Type: 
  Country: None (occurrence: None)
  Receive Date: 20120305
  Receipt Date: 20120221
  Transmission Date: 20120608
  Serious: Yes (Other)
  Sender: FDA-Public Use
  Company Number: US-ELI_LILLY_AND_COMPANY-US200910007349

PATIENT
  Sex: Male

DRUGS (2)
  1. WELLBUTRIN [Concomitant]
  2. ZYPREXA [Suspect]
     Indication: SCHIZOPHRENIA, PARANOID TYPE
     Dosage: 1 D/F, UNK
     Dates: start: 19980720

REACTIONS (8)
  - BLOOD TRIGLYCERIDES INCREASED [None]
  - DIABETES MELLITUS [None]
  - BLOOD CHOLESTEROL INCREASED [None]
  - HEPATIC CIRRHOSIS [None]
  - OVERDOSE [None]
  - WEIGHT INCREASED [None]
  - HEPATITIS [None]
  - CARDIAC MURMUR [None]
